FAERS Safety Report 4338451-6 (Version None)
Quarter: 2004Q2

REPORT INFORMATION
  Report Type: 
  Country: None (occurrence: None)
  Receive Date: 20040407
  Receipt Date: 20040325
  Transmission Date: 20050107
  Serious: Yes (Other)
  Sender: FDA-Public Use
  Company Number: 2004021014

PATIENT
  Age: 60 Year
  Sex: Male

DRUGS (3)
  1. DOXAZOSIN MESLYLATE [Suspect]
     Indication: BENIGN PROSTATIC HYPERPLASIA
     Dosage: 4 MG (DAILY), ORAL
     Route: 048
     Dates: start: 20010901
  2. OMEPRAZOLE [Concomitant]
  3. LOSARTAN (LOSARTAN) [Concomitant]

REACTIONS (5)
  - BLOOD PRESSURE INCREASED [None]
  - CONDITION AGGRAVATED [None]
  - NASAL CONGESTION [None]
  - PROSTATIC DISORDER [None]
  - RHINITIS [None]
